FAERS Safety Report 11177484 (Version 1)
Quarter: 2015Q2

REPORT INFORMATION
  Report Type: Spontaneous
  Country: JP (occurrence: JP)
  Receive Date: 20150610
  Receipt Date: 20150610
  Transmission Date: 20150821
  Serious: Yes (Other)
  Sender: FDA-Public Use
  Company Number: JP-JNJFOC-20150604317

PATIENT
  Sex: Male

DRUGS (1)
  1. TRAMCET [Suspect]
     Active Substance: ACETAMINOPHEN\TRAMADOL
     Indication: PRODUCT USED FOR UNKNOWN INDICATION
     Route: 048

REACTIONS (6)
  - Hypoaesthesia [Unknown]
  - Drug dependence [Unknown]
  - Intentional self-injury [Unknown]
  - Performance status decreased [Recovering/Resolving]
  - Tremor [Unknown]
  - Mental disorder [Unknown]
